FAERS Safety Report 6421354-0 (Version None)
Quarter: 2009Q4

REPORT INFORMATION
  Report Type: 
  Country: None (occurrence: None)
  Receive Date: 20091030
  Receipt Date: 20091021
  Transmission Date: 20100525
  Serious: Yes (Hospitalization)
  Sender: FDA-Public Use
  Company Number: PHHO2008DE09674

PATIENT
  Sex: Male
  Weight: 85 kg

DRUGS (4)
  1. SANDIMMUNE [Suspect]
     Indication: RENAL TRANSPLANT
     Dosage: 70 MG, BID
     Route: 048
  2. MYFORTIC [Suspect]
     Indication: RENAL TRANSPLANT
     Dosage: 720 MG, BID
     Route: 048
  3. NO TREATMENT RECEIVED NOMED [Suspect]
     Indication: RENAL TRANSPLANT
  4. URBASON [Suspect]
     Indication: RENAL TRANSPLANT
     Dosage: 16 MG, QD
     Route: 048

REACTIONS (6)
  - BLOOD CREATININE INCREASED [None]
  - CARDIAC FAILURE [None]
  - NEPHROPATHY TOXIC [None]
  - RENAL FAILURE [None]
  - RENAL IMPAIRMENT [None]
  - RENAL TUBULAR DISORDER [None]
